FAERS Safety Report 5505038-9 (Version None)
Quarter: 2007Q4

REPORT INFORMATION
  Report Type: 
  Country: None (occurrence: None)
  Receive Date: 20071102
  Receipt Date: 20071026
  Transmission Date: 20080405
  Serious: Yes (Other)
  Sender: FDA-Public Use
  Company Number: AR-ROCHE-527916

PATIENT
  Age: 14 Year
  Sex: Female

DRUGS (3)
  1. ROACCUTAN [Suspect]
     Indication: ACNE
     Route: 048
     Dates: end: 20071001
  2. ORAL CONTRACEPTION [Concomitant]
  3. ORAL CONTRACEPTION [Concomitant]
     Dosage: CHEAPER BRAND.

REACTIONS (2)
  - NO ADVERSE REACTION [None]
  - PREGNANCY [None]
